FAERS Safety Report 16646990 (Version 2)
Quarter: 2019Q3

REPORT INFORMATION
  Report Type: Spontaneous
  Country: JP (occurrence: JP)
  Receive Date: 20190730
  Receipt Date: 20190902
  Transmission Date: 20191004
  Serious: Yes (Other)
  Sender: FDA-Public Use
  Company Number: PHJP2019JP009903

PATIENT

DRUGS (1)
  1. VOTRIENT [Suspect]
     Active Substance: PAZOPANIB HYDROCHLORIDE
     Indication: RENAL CELL CARCINOMA
     Dosage: 800 MG, UNK
     Route: 048

REACTIONS (2)
  - Protein urine [Recovered/Resolved]
  - Renal impairment [Recovered/Resolved]
